FAERS Safety Report 4521620-X (Version None)
Quarter: 2004Q4

REPORT INFORMATION
  Report Type: 
  Country: None (occurrence: None)
  Receive Date: 20041206
  Receipt Date: 20041130
  Transmission Date: 20050328
  Serious: Yes (Hospitalization, Other)
  Sender: FDA-Public Use
  Company Number: USA-2004-0016892

PATIENT
  Age: 50 Year
  Sex: Male
  Weight: 93 kg

DRUGS (7)
  1. OXYCODONE HCL [Suspect]
     Dosage: SEE TEXT
     Dates: start: 20040901, end: 20040908
  2. VALIUM [Suspect]
     Indication: SLEEP DISORDER
     Dosage: 10 MG, HS
     Dates: start: 20030501, end: 20040908
  3. VICODIN [Suspect]
     Dosage: MG
  4. NAPROXEN [Concomitant]
  5. SERTRALINE (SERTRALINE) [Concomitant]
  6. ANDRODERM [Concomitant]
  7. COMBIVENT (IPRATOPIUM BROMIDE, SALBUTAMOL SULFATE) [Concomitant]

REACTIONS (7)
  - ALCOHOLISM [None]
  - DISEASE RECURRENCE [None]
  - DRUG ABUSER [None]
  - DRUG WITHDRAWAL SYNDROME [None]
  - MEDICATION ERROR [None]
  - MENTAL DISORDER [None]
  - TREATMENT NONCOMPLIANCE [None]
